FAERS Safety Report 4768763-3 (Version None)
Quarter: 2005Q3

REPORT INFORMATION
  Report Type: 
  Country: None (occurrence: None)
  Receive Date: 20050914
  Receipt Date: 20050909
  Transmission Date: 20060218
  Serious: Yes (Hospitalization)
  Sender: FDA-Public Use
  Company Number: FR-BRISTOL-MYERS SQUIBB COMPANY-13105986

PATIENT
  Sex: Female

DRUGS (1)
  1. SUSTIVA [Suspect]
     Route: 048

REACTIONS (1)
  - NEPHROLITHIASIS [None]
